FAERS Safety Report 23648770 (Version 7)
Quarter: 2025Q2

REPORT INFORMATION
  Report Type: Report from Study
  Country: JP (occurrence: JP)
  Receive Date: 20240319
  Receipt Date: 20250619
  Transmission Date: 20250717
  Serious: Yes (Death, Life-Threatening, Hospitalization, Other)
  Sender: GENMAB
  Company Number: JP-GENMAB-2024-00050AA

PATIENT
  Age: 71 Year
  Sex: Female
  Weight: 65 kg

DRUGS (10)
  1. EPKINLY [Suspect]
     Active Substance: EPCORITAMAB-BYSP
     Indication: Diffuse large B-cell lymphoma refractory
     Route: 058
     Dates: start: 20231228, end: 20231228
  2. EPKINLY [Suspect]
     Active Substance: EPCORITAMAB-BYSP
     Route: 058
     Dates: start: 20240104, end: 20240104
  3. CORTICOTROPIN [Concomitant]
     Active Substance: CORTICOTROPIN
     Indication: Prophylaxis
     Dates: start: 202312, end: 202401
  4. MAGNESIUM OXIDE [Concomitant]
     Active Substance: MAGNESIUM OXIDE
     Indication: Constipation
     Dosage: 3 TABLETS, 3 TIMES A DAY, PRN
     Route: 048
     Dates: start: 20231211, end: 2024
  5. DAYVIGO [Concomitant]
     Active Substance: LEMBOREXANT
     Indication: Insomnia
     Dosage: 0.5 TABLETS, QD, BEFORE SLEEPING
     Route: 048
     Dates: start: 20231211, end: 2024
  6. LANSOPRAZOLE [Concomitant]
     Active Substance: LANSOPRAZOLE
     Indication: Chronic gastritis
     Dosage: 1 TABLET, QD, IN THE MORNING
     Route: 048
     Dates: start: 20231207, end: 2024
  7. FLUCONAZOLE [Concomitant]
     Active Substance: FLUCONAZOLE
     Indication: Infection prophylaxis
     Dosage: 2 CAPSULES, QD, IN THE MORNING
     Route: 048
     Dates: start: 20231207, end: 2024
  8. SULFAMETHOXAZOLE\TRIMETHOPRIM [Concomitant]
     Active Substance: SULFAMETHOXAZOLE\TRIMETHOPRIM
     Indication: Prophylaxis
     Dosage: 1 TABLET, QD, IN THE MORNING
     Route: 048
     Dates: start: 20231227, end: 2024
  9. ZOVIRAX [Concomitant]
     Active Substance: ACYCLOVIR
     Indication: Prophylaxis
     Dosage: 1 TABLET, QD, IN THE MORNING
     Route: 048
     Dates: start: 20231227, end: 2024
  10. FEBUXOSTAT [Concomitant]
     Active Substance: FEBUXOSTAT
     Indication: Prophylaxis
     Dosage: 4 TABLETS, QD, IN THE MORNING
     Dates: start: 20231207, end: 2024

REACTIONS (7)
  - Immune effector cell-associated neurotoxicity syndrome [Not Recovered/Not Resolved]
  - Sepsis [Recovered/Resolved]
  - Immune effector cell-associated neurotoxicity syndrome [Recovered/Resolved]
  - Pleural effusion [Fatal]
  - Device related infection [Recovered/Resolved]
  - Device related infection [Recovered/Resolved]
  - Urinary tract infection [Not Recovered/Not Resolved]

NARRATIVE: CASE EVENT DATE: 20240101
